FAERS Safety Report 14181518 (Version 12)
Quarter: 2018Q4

REPORT INFORMATION
  Report Type: Report from Study
  Country: None (occurrence: JP)
  Receive Date: 20171112
  Receipt Date: 20181219
  Transmission Date: 20190204
  Serious: Yes (Hospitalization)
  Sender: FDA-Public Use
  Company Number: JP-ABBVIE-17K-087-2159937-00

PATIENT
  Age: 68 Year
  Sex: Male
  Weight: 60 kg

DRUGS (14)
  1. ROTIGOTINE [Concomitant]
     Active Substance: ROTIGOTINE
     Indication: PARKINSON^S DISEASE
     Route: 062
     Dates: start: 20171006
  2. CARBIDOPA HYDRATE-LEVODOPA [Concomitant]
     Indication: ON AND OFF PHENOMENON
     Route: 048
     Dates: start: 20180120
  3. DUODOPA [Suspect]
     Active Substance: CARBIDOPA\LEVODOPA
     Indication: PARKINSON^S DISEASE
     Dosage: MD: 17 ML, CD: 3.8 ML/HR X 16 HR
     Route: 050
     Dates: start: 20170629, end: 20170705
  4. CELECOXIB. [Concomitant]
     Active Substance: CELECOXIB
     Indication: PRODUCT USED FOR UNKNOWN INDICATION
     Route: 048
  5. MAGNESIUM OXIDE. [Concomitant]
     Active Substance: MAGNESIUM OXIDE
     Indication: PRODUCT USED FOR UNKNOWN INDICATION
     Route: 048
  6. ISTRADEFYLLINE [Concomitant]
     Active Substance: ISTRADEFYLLINE
     Indication: PARKINSON^S DISEASE
     Route: 048
     Dates: start: 20180104
  7. DUODOPA [Suspect]
     Active Substance: CARBIDOPA\LEVODOPA
     Dosage: MD: 15 ML, CD: 4.6 ML/HR X 16 HR
     Route: 050
     Dates: start: 20171013, end: 201710
  8. DUODOPA [Suspect]
     Active Substance: CARBIDOPA\LEVODOPA
     Dosage: MD: 4.7 ML, CD: 4.7 ML/HR X 16 HR, ED: 2 ML/UNIT X 2
     Route: 050
     Dates: start: 20171116, end: 20171230
  9. DUODOPA [Suspect]
     Active Substance: CARBIDOPA\LEVODOPA
     Dosage: MD: 5 ML CD: 5.1 ML/HR ? 16 HRS ED: 2 ML/UNIT ? 2 TIMES
     Route: 050
     Dates: start: 20180303, end: 20180331
  10. EDOXABAN TOSILATE HYDRATE [Concomitant]
     Indication: PROPHYLAXIS
     Route: 048
  11. MECOBALAMIN [Concomitant]
     Active Substance: METHYLCOBALAMIN
     Indication: PROPHYLAXIS
     Route: 048
  12. DUODOPA [Suspect]
     Active Substance: CARBIDOPA\LEVODOPA
     Dosage: MD: 15 ML, CD: 5.0 ML/HR X 16 HR
     Route: 050
     Dates: start: 20170706, end: 20171013
  13. DUODOPA [Suspect]
     Active Substance: CARBIDOPA\LEVODOPA
     Dosage: MD: 5 ML, CD: 5 ML/HR X 16 HR, ED: 2 ML/UNIT X 2 TIMES
     Route: 050
     Dates: start: 20171231, end: 20180302
  14. DUODOPA [Suspect]
     Active Substance: CARBIDOPA\LEVODOPA
     Dosage: MD: 4.6 ML, CD: 4.6 ML/HR X 16 HR, ED: 2 ML/UNIT X 2
     Route: 050
     Dates: start: 20171017, end: 20171115

REACTIONS (5)
  - Femur fracture [Recovering/Resolving]
  - Dyskinesia [Recovering/Resolving]
  - Stoma site reaction [Unknown]
  - Compression fracture [Unknown]
  - Fall [Unknown]

NARRATIVE: CASE EVENT DATE: 20170706
